FAERS Safety Report 5464915-8 (Version None)
Quarter: 2007Q3

REPORT INFORMATION
  Report Type: 
  Country: None (occurrence: None)
  Receive Date: 20070921
  Receipt Date: 20070910
  Transmission Date: 20080115
  Serious: Yes (Other)
  Sender: FDA-Public Use
  Company Number: US-PFIZER INC-2007076712

PATIENT
  Sex: Female
  Weight: 68.181 kg

DRUGS (7)
  1. NEURONTIN [Suspect]
     Indication: NEURALGIA
     Dates: start: 20040101, end: 20050101
  2. LYRICA [Suspect]
     Indication: NEURALGIA
     Dates: start: 20060101, end: 20060101
  3. EFFEXOR [Concomitant]
  4. VALIUM [Concomitant]
  5. CHOLESTEROL- AND TRIGLYCERIDE REDUCERS [Concomitant]
  6. CARDIZEM [Concomitant]
  7. TOPROL-XL [Concomitant]

REACTIONS (2)
  - DRUG INEFFECTIVE [None]
  - HYPERTENSION [None]
